FAERS Safety Report 19841037 (Version 1)
Quarter: 2021Q3

REPORT INFORMATION
  Report Type: Other
  Country: US (occurrence: US)
  Receive Date: 20210916
  Receipt Date: 20210916
  Transmission Date: 20211014
  Serious: No
  Sender: FDA-Public Use
  Company Number: US-LEADIANT BIOSCIENCES INC-2020STPI000500

PATIENT
  Sex: Female

DRUGS (10)
  1. MATULANE [Suspect]
     Active Substance: PROCARBAZINE HYDROCHLORIDE
     Indication: BRAIN CANCER METASTATIC
     Dosage: 150 MILLIGRAM, DAYS 8 TO 21 OF 42 DAY CYCLE
     Dates: start: 20201124
  2. AMLODIPINE [Concomitant]
     Active Substance: AMLODIPINE BESYLATE
  3. GLEOSTINE [Concomitant]
     Active Substance: LOMUSTINE
  4. MELATONIN [Concomitant]
     Active Substance: MELATONIN
  5. ASPIRIN 81 [Concomitant]
     Active Substance: ASPIRIN
  6. ONDANSETRON [Concomitant]
     Active Substance: ONDANSETRON
  7. VITAMIN D NOS [Concomitant]
     Active Substance: VITAMIN D NOS
  8. TELMISARTAN. [Concomitant]
     Active Substance: TELMISARTAN
  9. DORZOLAMIDE TIMOLOL [Concomitant]
     Active Substance: DORZOLAMIDE
  10. LEVETIRACETAM. [Concomitant]
     Active Substance: LEVETIRACETAM

REACTIONS (1)
  - Constipation [Not Recovered/Not Resolved]
